FAERS Safety Report 6392488-4 (Version None)
Quarter: 2009Q4

REPORT INFORMATION
  Report Type: 
  Country: None (occurrence: None)
  Receive Date: 20091007
  Receipt Date: 20090925
  Transmission Date: 20100525
  Serious: Yes (Other)
  Sender: FDA-Public Use
  Company Number: US-SANOFI-SYNTHELABO-A03200902138

PATIENT
  Sex: Male

DRUGS (7)
  1. UROXATRAL [Suspect]
     Indication: BENIGN PROSTATIC HYPERPLASIA
     Route: 048
     Dates: start: 20090406, end: 20090420
  2. UROXATRAL [Suspect]
     Route: 048
     Dates: start: 20090427, end: 20090511
  3. ASPIRIN [Concomitant]
     Indication: BENIGN PROSTATIC HYPERPLASIA
     Route: 065
     Dates: start: 20081115
  4. FISH OIL [Concomitant]
     Indication: BENIGN PROSTATIC HYPERPLASIA
     Route: 065
     Dates: start: 20081115
  5. SELENIUM [Concomitant]
     Indication: BENIGN PROSTATIC HYPERPLASIA
     Route: 065
     Dates: start: 20081115
  6. ZINC [Concomitant]
     Indication: BENIGN PROSTATIC HYPERPLASIA
     Route: 065
     Dates: start: 20081115
  7. VITAMIN E [Concomitant]
     Indication: BENIGN PROSTATIC HYPERPLASIA
     Route: 065
     Dates: start: 20081115

REACTIONS (3)
  - ATRIAL FIBRILLATION [None]
  - CHEST PAIN [None]
  - HYPOTENSION [None]
